FAERS Safety Report 8966316 (Version 1)
Quarter: 2012Q4

REPORT INFORMATION
  Report Type: 
  Country: CH (occurrence: CH)
  Receive Date: 20121216
  Receipt Date: 20121216
  Transmission Date: 20130627
  Serious: Yes (Hospitalization)
  Sender: FDA-Public Use
  Company Number: CH-BRISTOL-MYERS SQUIBB COMPANY-17191495

PATIENT
  Age: 77 Year
  Sex: Female
  Weight: 60 kg

DRUGS (8)
  1. COAPROVEL TABS 150MG/12.5MG [Suspect]
     Indication: ESSENTIAL HYPERTENSION
     Dosage: 1DF:12.5mg/150mg
     Route: 048
     Dates: start: 201002, end: 20121110
  2. AMOXICILLIN [Suspect]
     Indication: BACTERIAL INFECTION
     Route: 048
     Dates: start: 20121019, end: 20121026
  3. KLACID [Suspect]
     Indication: BACTERIAL INFECTION
     Dosage: tab
     Route: 048
     Dates: start: 20121019, end: 20121026
  4. AMLODIPINE [Suspect]
     Indication: ESSENTIAL HYPERTENSION
     Route: 048
     Dates: start: 20121019, end: 20121109
  5. SORTIS [Suspect]
     Indication: ACUTE MYOCARDIAL INFARCTION
     Dosage: tablet
     Route: 048
     Dates: start: 20100210, end: 20121110
  6. ACETYLSALICYLIC ACID [Concomitant]
     Route: 048
     Dates: start: 201002
  7. CONCOR [Concomitant]
     Route: 048
     Dates: start: 2010
  8. PANTOZOL [Concomitant]
     Route: 048
     Dates: start: 201210

REACTIONS (3)
  - Rhabdomyolysis [Recovering/Resolving]
  - Renal failure chronic [Recovering/Resolving]
  - Syncope [Recovered/Resolved]
